FAERS Safety Report 7946438-7 (Version None)
Quarter: 2011Q4

REPORT INFORMATION
  Report Type: 
  Country: None (occurrence: None)
  Receive Date: 20111122
  Receipt Date: 20111116
  Transmission Date: 20120403
  Serious: Yes (Hospitalization)
  Sender: FDA-Public Use
  Company Number: 2011SP053548

PATIENT
  Sex: Male

DRUGS (1)
  1. PEGATRON (PEGYLATED INTERFERON ALFA-2B W/RIBAVIRIN) [Suspect]
     Indication: PRODUCT USED FOR UNKNOWN INDICATION

REACTIONS (8)
  - LETHARGY [None]
  - SKIN DISCOLOURATION [None]
  - NEEDLE ISSUE [None]
  - HEPATIC INFECTION [None]
  - DEHYDRATION [None]
  - FATIGUE [None]
  - INJECTION SITE MASS [None]
  - NAUSEA [None]
